FAERS Safety Report 9264084 (Version 1)
Quarter: 2013Q2

REPORT INFORMATION
  Report Type: Spontaneous
  Country: US (occurrence: US)
  Receive Date: 20130430
  Receipt Date: 20130430
  Transmission Date: 20140414
  Serious: No
  Sender: FDA-Public Use
  Company Number: US-009507513-1304USA007478

PATIENT
  Age: 53 Year
  Sex: Female
  Weight: 82.54 kg

DRUGS (5)
  1. VICTRELIS [Suspect]
     Indication: HEPATITIS C
     Dosage: 800 MG, TID
     Route: 048
     Dates: start: 20130228, end: 2013
  2. REBETOL [Suspect]
     Route: 048
  3. PEGASYS [Suspect]
  4. OMEPRAZOLE [Concomitant]
  5. IBUPROFEN [Concomitant]

REACTIONS (5)
  - Mouth haemorrhage [Unknown]
  - Fatigue [Unknown]
  - Gingival bleeding [Unknown]
  - Thrombosis [Unknown]
  - Arthralgia [Not Recovered/Not Resolved]
